FAERS Safety Report 5078844-5 (Version None)
Quarter: 2006Q3

REPORT INFORMATION
  Report Type: 
  Country: None (occurrence: None)
  Receive Date: 20060814
  Receipt Date: 20060802
  Transmission Date: 20061208
  Serious: Yes (Hospitalization)
  Sender: FDA-Public Use
  Company Number: SE-ABBOTT-06P-150-0339432-00

PATIENT
  Age: 46 Year
  Sex: Male
  Weight: 102 kg

DRUGS (7)
  1. SINALFA (HYTRIN) [Suspect]
     Indication: HYPERTENSION
     Route: 048
     Dates: start: 20040101, end: 20060801
  2. SINALFA (HYTRIN) [Suspect]
     Indication: BENIGN PROSTATIC HYPERPLASIA
  3. PROPRANOLOL HYDROCHLORIDE [Concomitant]
     Indication: HYPERTENSION
  4. CANDESARTAN CILEXETIL [Concomitant]
     Indication: HYPERTENSION
     Dates: start: 19980101
  5. ISOPTIN [Concomitant]
     Indication: HYPERTENSION
     Route: 048
  6. ATORVASTATIN CALCIUM [Concomitant]
     Indication: DRUG USE FOR UNKNOWN INDICATION
  7. UNDISTERONE [Concomitant]
     Indication: ANDROGEN THERAPY
     Dates: end: 20060101

REACTIONS (5)
  - EXCORIATION [None]
  - MUSCLE SPASMS [None]
  - MYALGIA [None]
  - NAUSEA [None]
  - SYNCOPE [None]
